FAERS Safety Report 5317220-4 (Version None)
Quarter: 2007Q2

REPORT INFORMATION
  Report Type: 
  Country: None (occurrence: None)
  Receive Date: 20070504
  Receipt Date: 20070424
  Transmission Date: 20071010
  Serious: Yes (Other)
  Sender: FDA-Public Use
  Company Number: JP-PFIZER INC-2007029316

PATIENT
  Sex: Female

DRUGS (2)
  1. ZITHROMAC [Suspect]
  2. HOKUNALIN [Concomitant]

REACTIONS (2)
  - EYELID PTOSIS [None]
  - TREMOR [None]
